FAERS Safety Report 9714149 (Version 2)
Quarter: 2015Q3

REPORT INFORMATION
  Report Type: Spontaneous
  Country: US (occurrence: US)
  Receive Date: 20131126
  Receipt Date: 20150803
  Transmission Date: 20151125
  Serious: No
  Sender: FDA-Public Use
  Company Number: US-GILEAD-2008-0019076

PATIENT
  Age: 65 Year
  Sex: Female
  Weight: 157.4 kg

DRUGS (9)
  1. ADVAIR DISKUS [Concomitant]
     Active Substance: FLUTICASONE PROPIONATE\SALMETEROL XINAFOATE
  2. VERAPAMIL [Concomitant]
     Active Substance: VERAPAMIL HYDROCHLORIDE
  3. POTASSIUM CHLORIDE. [Concomitant]
     Active Substance: POTASSIUM CHLORIDE
  4. ALEVE [Concomitant]
     Active Substance: NAPROXEN SODIUM
  5. LETAIRIS [Suspect]
     Active Substance: AMBRISENTAN
     Indication: PULMONARY ARTERIAL HYPERTENSION
     Route: 048
     Dates: start: 20081104
  6. COUMADIN [Concomitant]
     Active Substance: WARFARIN SODIUM
  7. CENTRUM SILVER [Concomitant]
     Active Substance: VITAMINS
  8. LASIX [Concomitant]
     Active Substance: FUROSEMIDE
  9. BENADRYL [Concomitant]
     Active Substance: DIPHENHYDRAMINE HYDROCHLORIDE

REACTIONS (1)
  - Dyspnoea [None]
